FAERS Safety Report 6326449-8 (Version None)
Quarter: 2009Q3

REPORT INFORMATION
  Report Type: 
  Country: None (occurrence: None)
  Receive Date: 20090825
  Receipt Date: 20071114
  Transmission Date: 20100115
  Serious: Yes (Hospitalization, Other)
  Sender: FDA-Public Use
  Company Number: US-ASTRAZENECA-2006UW24960

PATIENT
  Age: 54 Year
  Sex: Male
  Weight: 86.2 kg

DRUGS (16)
  1. SEROQUEL [Suspect]
     Indication: INSOMNIA
     Route: 048
     Dates: start: 20000101
  2. SEROQUEL [Suspect]
     Dosage: STRENGTH 50 MG, 200 MG, 300 MG, 400 MG, 800 MG  DOSE 50 MG-800 MG
     Route: 048
     Dates: start: 20010720
  3. CELEBREX [Concomitant]
     Dosage: 200MG- 400 MG  DAILY
     Route: 048
     Dates: start: 20010720
  4. ADALAT CC [Concomitant]
     Dosage: STRENGTH-  30MG, 90MG  DOSE-  30-90 MG DAILY
     Route: 048
     Dates: start: 20010720
  5. DEPAKOTE [Concomitant]
     Dosage: 500MG-2000 MG
     Route: 048
     Dates: start: 20010720
  6. PROZAC [Concomitant]
     Dosage: STRENGTH-  20MG, 40MG  DOSE- 20-40MG DAILY
     Route: 048
     Dates: start: 20010720
  7. DIPHENHYDRAMINE HCL [Concomitant]
     Route: 048
     Dates: start: 20010720
  8. NORVASC [Concomitant]
     Dates: start: 20070430
  9. IBUPROFEN [Concomitant]
     Dates: start: 20070507
  10. LISINOPRIL [Concomitant]
     Dosage: STRENGTH 5 MG, 10 MG  DOSE 15MG DAILY
     Route: 048
     Dates: start: 20030225
  11. LITHIUM CARBONATE [Concomitant]
     Route: 048
     Dates: start: 20030225
  12. AMBIEN [Concomitant]
     Route: 048
     Dates: start: 20030225
  13. ZOCOR [Concomitant]
     Route: 048
     Dates: start: 20030225
  14. LORAZEPAM [Concomitant]
     Dates: start: 20030225
  15. PAXIL [Concomitant]
     Route: 048
     Dates: start: 20030225
  16. MEPERIDINE HCL [Concomitant]
     Dosage: AT NIGHT
     Dates: start: 20030225

REACTIONS (4)
  - DIABETES MELLITUS [None]
  - DIABETIC EYE DISEASE [None]
  - TYPE 1 DIABETES MELLITUS [None]
  - TYPE 2 DIABETES MELLITUS [None]
